FAERS Safety Report 8134308-3 (Version None)
Quarter: 2012Q1

REPORT INFORMATION
  Report Type: 
  Country: None (occurrence: None)
  Receive Date: 20120209
  Receipt Date: 20120125
  Transmission Date: 20120608
  Serious: Yes (Other)
  Sender: FDA-Public Use
  Company Number: JPI-P-019484

PATIENT
  Age: 77 Year
  Sex: Male
  Weight: 81.6475 kg

DRUGS (6)
  1. XYREM [Suspect]
     Indication: CATAPLEXY
     Dosage: ORAL; 3 GM (3 GM, 1 IN 1 D), ORAL; 6 GM (3 GM, 2 IN 1 D), ORAL
     Route: 048
     Dates: start: 20111201, end: 20111228
  2. XYREM [Suspect]
     Indication: NARCOLEPSY
     Dosage: ORAL; 3 GM (3 GM, 1 IN 1 D), ORAL; 6 GM (3 GM, 2 IN 1 D), ORAL
     Route: 048
     Dates: start: 20111201, end: 20111228
  3. XYREM [Suspect]
     Indication: CATAPLEXY
     Dosage: ORAL; 3 GM (3 GM, 1 IN 1 D), ORAL; 6 GM (3 GM, 2 IN 1 D), ORAL
     Route: 048
     Dates: start: 20041201, end: 20111201
  4. XYREM [Suspect]
     Indication: NARCOLEPSY
     Dosage: ORAL; 3 GM (3 GM, 1 IN 1 D), ORAL; 6 GM (3 GM, 2 IN 1 D), ORAL
     Route: 048
     Dates: start: 20041201, end: 20111201
  5. XYREM [Suspect]
     Indication: CATAPLEXY
     Dosage: ORAL; 3 GM (3 GM, 1 IN 1 D), ORAL; 6 GM (3 GM, 2 IN 1 D), ORAL
     Route: 048
     Dates: start: 20111229
  6. XYREM [Suspect]
     Indication: NARCOLEPSY
     Dosage: ORAL; 3 GM (3 GM, 1 IN 1 D), ORAL; 6 GM (3 GM, 2 IN 1 D), ORAL
     Route: 048
     Dates: start: 20111229

REACTIONS (3)
  - LUNG CANCER METASTATIC [None]
  - MUSCULOSKELETAL PAIN [None]
  - ARTHROPATHY [None]
